FAERS Safety Report 7755414-9 (Version None)
Quarter: 2011Q3

REPORT INFORMATION
  Report Type: 
  Country: None (occurrence: None)
  Receive Date: 20110916
  Receipt Date: 20110909
  Transmission Date: 20111222
  Serious: Yes (Hospitalization)
  Sender: FDA-Public Use
  Company Number: JP-B.I. PHARMACEUTICALS,INC./RIDGEFIELD-2006-BP-10795NB

PATIENT
  Sex: Female
  Weight: 42.2 kg

DRUGS (8)
  1. ACTONEL [Suspect]
     Indication: OSTEOPOROSIS
     Dosage: 2.5 MG
     Route: 048
     Dates: start: 20060112, end: 20060209
  2. ALDACTONE [Concomitant]
     Indication: OEDEMA
     Dosage: 50 MG
     Route: 048
     Dates: start: 20060125
  3. MOBIC [Suspect]
     Indication: BACK PAIN
     Dosage: 5 MG
     Route: 048
     Dates: start: 20060112, end: 20060209
  4. LOSARTAN POTASSIUM [Concomitant]
     Indication: HYPERTENSION
     Dosage: 50 MG
     Route: 048
     Dates: start: 20030101
  5. LASIX [Concomitant]
     Indication: OEDEMA
     Dosage: 40 MG
     Route: 048
     Dates: start: 20060125
  6. SELBEX [Suspect]
     Indication: GASTRITIS
     Dosage: 150 MG
     Route: 048
     Dates: start: 20060112, end: 20060209
  7. GLAKAY [Suspect]
     Indication: OSTEOPOROSIS
     Dosage: 45 MG
     Route: 048
     Dates: start: 20060112, end: 20060209
  8. AMLODIPINE BESYLATE [Concomitant]
     Indication: HYPERTENSION
     Dosage: 2.5 MG
     Route: 048
     Dates: start: 20030101

REACTIONS (1)
  - NEPHROTIC SYNDROME [None]
